FAERS Safety Report 10524644 (Version 1)
Quarter: 2014Q4

REPORT INFORMATION
  Report Type: Spontaneous
  Country: US (occurrence: None)
  Receive Date: 20141015
  Receipt Date: 20141015
  Transmission Date: 20150528
  Serious: Yes (Other)
  Sender: FDA-Public Use
  Company Number: None

PATIENT
  Age: 59 Year
  Weight: 63.05 kg

DRUGS (1)
  1. ALENDRONATE SODIUM. [Suspect]
     Active Substance: ALENDRONATE SODIUM
     Indication: BONE DISORDER
     Dosage: I ONE EVEY WEEK TAKEN BY MOUTH
     Route: 048
     Dates: start: 20141007, end: 20141007

REACTIONS (8)
  - Abasia [None]
  - Pain [None]
  - Arthralgia [None]
  - Dyspnoea [None]
  - Joint swelling [None]
  - Chest pain [None]
  - Back pain [None]
  - Eructation [None]

NARRATIVE: CASE EVENT DATE: 20141007
